FAERS Safety Report 8309764-8 (Version None)
Quarter: 2012Q2

REPORT INFORMATION
  Report Type: 
  Country: None (occurrence: None)
  Receive Date: 20120425
  Receipt Date: 20120417
  Transmission Date: 20120825
  Serious: Yes (Congenital Anomaly)
  Sender: FDA-Public Use
  Company Number: PHHY2012SA033363

PATIENT
  Age: 4 Year
  Sex: Female
  Weight: 2.7 kg

DRUGS (2)
  1. LETROZOLE [Suspect]
     Dosage: MATERNAL DOSE: 5 MG
     Route: 064
  2. FOLIC ACID [Concomitant]
     Dosage: MATERNAL DOSE: 5 MG

REACTIONS (2)
  - MICROTIA [None]
  - FOETAL EXPOSURE DURING PREGNANCY [None]
